FAERS Safety Report 6284288-0 (Version None)
Quarter: 2009Q3

REPORT INFORMATION
  Report Type: 
  Country: None (occurrence: None)
  Receive Date: 20090727
  Receipt Date: 20090722
  Transmission Date: 20100115
  Serious: Yes (Death, Hospitalization)
  Sender: FDA-Public Use
  Company Number: PHHY2009GB27540

PATIENT
  Sex: Male

DRUGS (4)
  1. CLOZARIL [Suspect]
     Indication: SCHIZOPHRENIA
     Dosage: UNK
     Dates: start: 19980317
  2. CLOZARIL [Suspect]
     Dosage: 450 MG DAILY
     Dates: start: 20080130
  3. VALPROATE SODIUM [Concomitant]
     Indication: EPILEPSY
     Dosage: 1200 MG, UNK
     Route: 048
  4. FLUOXETINE HCL [Concomitant]
     Indication: DEPRESSION
     Dosage: 20MG DAILY
     Route: 048

REACTIONS (2)
  - EPILEPSY [None]
  - INTRACRANIAL ANEURYSM [None]
